FAERS Safety Report 4289081-6 (Version None)
Quarter: 2004Q1

REPORT INFORMATION
  Report Type: 
  Country: None (occurrence: None)
  Receive Date: 20040130
  Receipt Date: 20031006
  Transmission Date: 20041129
  Serious: No
  Sender: FDA-Public Use
  Company Number: WAES 0309USA01521

PATIENT
  Sex: Male

DRUGS (3)
  1. EMEND [Suspect]
     Indication: PROPHYLAXIS OF NAUSEA AND VOMITING
     Dosage: 120 MG/1X ; 80 MG : DAILY/PO
     Route: 048
     Dates: start: 20030101
  2. EMEND [Suspect]
     Indication: PROPHYLAXIS OF NAUSEA AND VOMITING
     Dosage: 120 MG/1X ; 80 MG : DAILY/PO
     Route: 048
     Dates: start: 20030101
  3. DEXAMETHASONE [Concomitant]

REACTIONS (1)
  - PRIAPISM [None]
